FAERS Safety Report 22124948 (Version 1)
Quarter: 2023Q1

REPORT INFORMATION
  Report Type: Spontaneous
  Country: FR (occurrence: FR)
  Receive Date: 20230322
  Receipt Date: 20230322
  Transmission Date: 20230418
  Serious: Yes (Hospitalization)
  Sender: FDA-Public Use
  Company Number: None

PATIENT
  Age: 68 Year
  Sex: Female
  Weight: 77 kg

DRUGS (10)
  1. METHOTREXATE [Suspect]
     Active Substance: METHOTREXATE
     Indication: Rheumatoid arthritis
     Dosage: UNKNOWN DOSE
     Route: 048
     Dates: start: 2022, end: 202207
  2. PACLITAXEL [Suspect]
     Active Substance: PACLITAXEL
     Indication: Squamous cell carcinoma of lung
     Dosage: 80 MILLIGRAM/SQ. METER, QW, TOTAL OF 7 COURSE
     Route: 042
     Dates: start: 202109, end: 20211021
  3. CARBOPLATIN [Suspect]
     Active Substance: CARBOPLATIN
     Indication: Squamous cell carcinoma of lung
     Dosage: 20 MILLIGRAM, QW, TOTAL OF 7 COURSES
     Route: 042
     Dates: start: 202109, end: 20211021
  4. IMFINZI [Suspect]
     Active Substance: DURVALUMAB
     Indication: Squamous cell carcinoma of lung
     Dosage: 800 MILLIGRAM
     Route: 042
     Dates: start: 20221215, end: 20221229
  5. ERGOCALCIFEROL [Concomitant]
     Active Substance: ERGOCALCIFEROL
     Dosage: UNK
     Route: 065
  6. GLYCOPYRRONIUM\INDACATEROL [Concomitant]
     Active Substance: GLYCOPYRRONIUM\INDACATEROL
     Dosage: UNK
     Route: 065
  7. BISOPROLOL FUMARATE [Concomitant]
     Active Substance: BISOPROLOL FUMARATE
     Dosage: UNK
     Route: 065
  8. GLICLAZIDE [Concomitant]
     Active Substance: GLICLAZIDE
     Dosage: UNK
     Route: 065
  9. JANUMET [Concomitant]
     Active Substance: METFORMIN HYDROCHLORIDE\SITAGLIPTIN PHOSPHATE
     Dosage: UNK
     Route: 065
  10. DOXAZOSIN MESYLATE [Concomitant]
     Active Substance: DOXAZOSIN MESYLATE
     Dosage: UNK
     Route: 065

REACTIONS (1)
  - Interstitial lung disease [Not Recovered/Not Resolved]

NARRATIVE: CASE EVENT DATE: 20221230
